FAERS Safety Report 16791271 (Version 1)
Quarter: 2019Q3

REPORT INFORMATION
  Report Type: Spontaneous
  Country: US (occurrence: US)
  Receive Date: 20190719
  Receipt Date: 20190719
  Transmission Date: 20191005
  Serious: Yes (Hospitalization)
  Sender: FDA-Public Use
  Company Number: None

PATIENT
  Age: 68 Year
  Sex: Male

DRUGS (27)
  1. FLUTIC/SALMET [Concomitant]
  2. PRILOSEC [Concomitant]
     Active Substance: OMEPRAZOLE MAGNESIUM
  3. ADVAIR HFA [Suspect]
     Active Substance: FLUTICASONE PROPIONATE\SALMETEROL XINAFOATE
  4. ALFUZOSIN [Concomitant]
     Active Substance: ALFUZOSIN
  5. LYRICA [Concomitant]
     Active Substance: PREGABALIN
  6. ROSUVASTATIN. [Concomitant]
     Active Substance: ROSUVASTATIN
  7. CRESTOR [Concomitant]
     Active Substance: ROSUVASTATIN CALCIUM
  8. FOLIC ACID. [Concomitant]
     Active Substance: FOLIC ACID
  9. IMURAN [Concomitant]
     Active Substance: AZATHIOPRINE
  10. LISINOPRIL. [Concomitant]
     Active Substance: LISINOPRIL
  11. PANTOPRAZOLE [Concomitant]
     Active Substance: PANTOPRAZOLE
  12. XALATAN [Concomitant]
     Active Substance: LATANOPROST
  13. MULTI VIT [Concomitant]
     Active Substance: VITAMINS
  14. TRIAMTERENE. [Concomitant]
     Active Substance: TRIAMTERENE
  15. ASPIRIN. [Concomitant]
     Active Substance: ASPIRIN
  16. HYDROCODE/APAP [Concomitant]
  17. PRAMIPEXOLE. [Concomitant]
     Active Substance: PRAMIPEXOLE
  18. VERAMYST [Concomitant]
     Active Substance: FLUTICASONE FUROATE
  19. PREDNISONE. [Concomitant]
     Active Substance: PREDNISONE
  20. TIZANIDINE. [Concomitant]
     Active Substance: TIZANIDINE
  21. MYCOPHENOLATE 250MG [Suspect]
     Active Substance: MYCOPHENOLIC ACID
     Indication: INTERSTITIAL LUNG DISEASE
     Dosage: ?          OTHER DOSE:6 CAPS;?
     Route: 048
     Dates: start: 20180627
  22. CLOPIDOGREL [Concomitant]
     Active Substance: CLOPIDOGREL BISULFATE
  23. FLUTICASONE  SPR [Concomitant]
  24. LUMIGAN [Concomitant]
     Active Substance: BIMATOPROST
  25. CALCIUM [Concomitant]
     Active Substance: CALCIUM
  26. METHOTREXATE. [Concomitant]
     Active Substance: METHOTREXATE
  27. PROVENTIL [Concomitant]
     Active Substance: ALBUTEROL

REACTIONS (2)
  - Surgery [None]
  - Therapy cessation [None]

NARRATIVE: CASE EVENT DATE: 20190702
